FAERS Safety Report 25924035 (Version 1)
Quarter: 2025Q4

REPORT INFORMATION
  Report Type: Spontaneous
  Country: GB (occurrence: GB)
  Receive Date: 20251015
  Receipt Date: 20251015
  Transmission Date: 20260117
  Serious: Yes (Other)
  Sender: IMMUNOCORE
  Company Number: GB-IMMUNOCORE, LTD.-2025-IMC-004870

PATIENT

DRUGS (1)
  1. TEBENTAFUSP [Suspect]
     Active Substance: TEBENTAFUSP
     Indication: Uveal melanoma

REACTIONS (1)
  - Pemphigoid [Recovered/Resolved]
